FAERS Safety Report 9569546 (Version 1)
Quarter: 2013Q3

REPORT INFORMATION
  Report Type: Spontaneous
  Country: US (occurrence: US)
  Receive Date: 20130930
  Receipt Date: 20130930
  Transmission Date: 20140515
  Serious: No
  Sender: FDA-Public Use
  Company Number: US-AMGEN-USASP2013066733

PATIENT
  Age: 57 Year
  Sex: Female

DRUGS (3)
  1. ENBREL [Suspect]
     Indication: PSORIATIC ARTHROPATHY
     Dosage: 50 MG, QWK
     Route: 065
     Dates: start: 20130703
  2. METHOTREXATE [Concomitant]
     Dosage: UNK 5 TABLETS TWO DAYS WEEKLY (TWO DAYS IN A ROW)
  3. SULFASALAZINE [Concomitant]
     Dosage: UNK, 1 TABLET TWICE DAILY (DOWN FROM 3 TABLETS TWICE DAILY

REACTIONS (1)
  - Paraesthesia [Not Recovered/Not Resolved]
